FAERS Safety Report 5984361-8 (Version None)
Quarter: 2008Q4

REPORT INFORMATION
  Report Type: 
  Country: None (occurrence: None)
  Receive Date: 20081208
  Receipt Date: 20081201
  Transmission Date: 20090506
  Serious: Yes (Hospitalization, Other)
  Sender: FDA-Public Use
  Company Number: PHHY2008BR27007

PATIENT
  Age: 75 Year
  Sex: Female
  Weight: 67 kg

DRUGS (8)
  1. TEGRETOL [Suspect]
     Indication: TINNITUS
     Dosage: TWO TABLETS DAILY
     Route: 048
     Dates: start: 19980101
  2. ASPIRIN [Concomitant]
     Indication: CARDIAC DISORDER
     Dosage: ONE TABLET IN THE MORNING
     Route: 048
     Dates: start: 20070101
  3. CLOPIDOGREL [Concomitant]
     Indication: CARDIAC DISORDER
     Dosage: ONE TABLET IN THE MORNING
     Route: 048
     Dates: start: 20070101
  4. ATENOLOL [Concomitant]
     Indication: CARDIAC DISORDER
     Dosage: TWO TABLETS DAILY
     Route: 048
     Dates: start: 20070101
  5. ATENOLOL [Concomitant]
     Dosage: ONE TABLET OF 50 MG
  6. CAPTOPRIL [Concomitant]
     Indication: HYPERTENSION
     Dosage: TWO TABLETS DAILY
     Route: 048
     Dates: start: 20070101
  7. SIMVASTATIN [Concomitant]
     Indication: BLOOD CHOLESTEROL
     Dosage: ONE TABLET AT NIGHT
     Route: 048
     Dates: start: 20070101
  8. COMBIRON B 12 [Concomitant]
     Indication: ANAEMIA
     Dosage: ONE TABLET AT NIGHT
     Route: 048
     Dates: start: 20081001

REACTIONS (4)
  - CORONARY ARTERIAL STENT INSERTION [None]
  - INFARCTION [None]
  - RECTAL CANCER [None]
  - WRONG DRUG ADMINISTERED [None]
